FAERS Safety Report 7278125-5 (Version None)
Quarter: 2011Q1

REPORT INFORMATION
  Report Type: 
  Country: None (occurrence: None)
  Receive Date: 20110207
  Receipt Date: 20110128
  Transmission Date: 20110831
  Serious: Yes (Hospitalization)
  Sender: FDA-Public Use
  Company Number: A0779270A

PATIENT
  Age: 74 Year
  Sex: Female
  Weight: 90.9 kg

DRUGS (7)
  1. AVANDIA [Suspect]
     Dosage: 4MG PER DAY
     Route: 048
     Dates: start: 20020101, end: 20080101
  2. ATENOLOL [Concomitant]
  3. ASPIRIN [Concomitant]
  4. ARIMIDEX [Concomitant]
  5. BENICAR [Concomitant]
  6. LASIX [Concomitant]
  7. ZOCOR [Concomitant]

REACTIONS (4)
  - CEREBROVASCULAR ACCIDENT [None]
  - PAIN [None]
  - SWELLING [None]
  - DIZZINESS [None]
